FAERS Safety Report 7684292-1 (Version None)
Quarter: 2011Q3

REPORT INFORMATION
  Report Type: 
  Country: None (occurrence: None)
  Receive Date: 20110815
  Receipt Date: 20110801
  Transmission Date: 20111222
  Serious: No
  Sender: FDA-Public Use
  Company Number: US-B.I. PHARMACEUTICALS,INC./RIDGEFIELD-2011-BP-05865BP

PATIENT
  Sex: Female

DRUGS (9)
  1. METOPROLOL TARTRATE [Concomitant]
     Indication: CARDIAC DISORDER
  2. PRADAXA [Suspect]
     Indication: ATRIAL FIBRILLATION
     Dosage: 300 MG
     Route: 048
     Dates: start: 20110101
  3. METOPROLOL TARTRATE [Concomitant]
     Indication: ATRIAL FIBRILLATION
     Dosage: 25 MG
     Route: 048
  4. HYDROCHLOROTHIAZIDE [Concomitant]
     Indication: FLUID RETENTION
  5. DIGOXIN [Concomitant]
     Indication: ATRIAL FIBRILLATION
     Dosage: 0.25 MG
     Route: 048
  6. LISINOPRIL [Concomitant]
     Indication: ATRIAL FIBRILLATION
     Dosage: 2.5 MG
     Route: 048
  7. LISINOPRIL [Concomitant]
     Indication: CEREBROVASCULAR ACCIDENT PROPHYLAXIS
  8. DIGOXIN [Concomitant]
     Indication: CARDIAC DISORDER
  9. HYDROCHLOROTHIAZIDE [Concomitant]
     Indication: OEDEMA PERIPHERAL
     Dosage: 12.5 MG
     Route: 048

REACTIONS (4)
  - DIZZINESS [None]
  - CHEST PAIN [None]
  - SWELLING FACE [None]
  - CONTUSION [None]
